FAERS Safety Report 9705021 (Version 2)
Quarter: 2013Q4

REPORT INFORMATION
  Report Type: Spontaneous
  Country: US (occurrence: US)
  Receive Date: 20131122
  Receipt Date: 20131122
  Transmission Date: 20140711
  Serious: No
  Sender: FDA-Public Use
  Company Number: US-ABBVIE-13P-163-1122579-00

PATIENT
  Sex: Male

DRUGS (3)
  1. ANDROGEL 1.62% [Suspect]
     Indication: BLOOD TESTOSTERONE DECREASED
     Dosage: 4 PUMPS DAILY TO ABDOMINAL AREA
     Route: 061
     Dates: start: 201304, end: 201307
  2. ANDROGEL 1% [Suspect]
     Indication: BLOOD TESTOSTERONE DECREASED
     Dosage: 8 PUMPS
     Route: 061
  3. ANDROGEL 1% [Suspect]
     Dosage: 8 PUMPS
     Route: 061
     Dates: start: 201307

REACTIONS (6)
  - Musculoskeletal pain [Recovered/Resolved]
  - Pain in extremity [Recovered/Resolved]
  - Myalgia [Recovered/Resolved]
  - Arthralgia [Recovered/Resolved]
  - Drug administered at inappropriate site [Not Recovered/Not Resolved]
  - Drug ineffective [Not Recovered/Not Resolved]
